FAERS Safety Report 6168979-8 (Version None)
Quarter: 2009Q2

REPORT INFORMATION
  Report Type: 
  Country: None (occurrence: None)
  Receive Date: 20090427
  Receipt Date: 20090227
  Transmission Date: 20091009
  Serious: Yes (Death, Hospitalization)
  Sender: FDA-Public Use
  Company Number: SG-AVENTIS-200914077GDDC

PATIENT

DRUGS (1)
  1. GLYBURIDE [Suspect]

REACTIONS (2)
  - HYPOGLYCAEMIC COMA [None]
  - NEUROGLYCOPENIA [None]
